FAERS Safety Report 23400572 (Version 2)
Quarter: 2024Q1

REPORT INFORMATION
  Report Type: Report from Study
  Country: KW (occurrence: KW)
  Receive Date: 20240115
  Receipt Date: 20240122
  Transmission Date: 20240410
  Serious: Yes (Hospitalization)
  Sender: FDA-Public Use
  Company Number: KW-AstraZeneca-2024A008690

PATIENT
  Age: 468 Day
  Sex: Female

DRUGS (1)
  1. PALIVIZUMAB [Suspect]
     Active Substance: PALIVIZUMAB
     Indication: Prophylaxis
     Dosage: 15 MG/KG MONTHLY
     Route: 030
     Dates: start: 20231106

REACTIONS (1)
  - Illness [Recovering/Resolving]

NARRATIVE: CASE EVENT DATE: 20240104
